FAERS Safety Report 20651953 (Version 1)
Quarter: 2022Q1

REPORT INFORMATION
  Report Type: Spontaneous
  Country: AR (occurrence: AR)
  Receive Date: 20220330
  Receipt Date: 20220330
  Transmission Date: 20220424
  Serious: Yes (Other)
  Sender: FDA-Public Use
  Company Number: AR-SA-2022SA104643

PATIENT
  Sex: Male

DRUGS (2)
  1. VIGABATRIN [Suspect]
     Active Substance: VIGABATRIN
     Indication: Infantile spasms
     Dosage: 194 MG/KG, QD
     Route: 065
  2. VALPROATE [Concomitant]
     Active Substance: VALPROIC ACID
     Indication: Infantile spasms
     Route: 065

REACTIONS (7)
  - Encephalopathy [Recovering/Resolving]
  - Lethargy [Recovering/Resolving]
  - Tremor [Recovering/Resolving]
  - Muscular weakness [Recovering/Resolving]
  - Psychomotor skills impaired [Recovering/Resolving]
  - Unresponsive to stimuli [Recovering/Resolving]
  - Magnetic resonance imaging head abnormal [Recovering/Resolving]
